FAERS Safety Report 6908751-1 (Version None)
Quarter: 2010Q3

REPORT INFORMATION
  Report Type: 
  Country: None (occurrence: None)
  Receive Date: 20100805
  Receipt Date: 20100729
  Transmission Date: 20110219
  Serious: Yes (Other)
  Sender: FDA-Public Use
  Company Number: A0852446A

PATIENT
  Sex: Male
  Weight: 66 kg

DRUGS (3)
  1. LAPATINIB [Suspect]
     Dosage: 1500MG PER DAY
     Route: 048
     Dates: start: 20090113
  2. CISPLATIN [Suspect]
     Dosage: 100MGM2 CYCLIC
     Route: 042
     Dates: start: 20090120
  3. RADIOTHERAPY [Suspect]
     Dosage: 10GY VARIABLE DOSE
     Route: 061
     Dates: start: 20090119

REACTIONS (1)
  - BLOOD URIC ACID INCREASED [None]
